FAERS Safety Report 12804820 (Version 4)
Quarter: 2016Q4

REPORT INFORMATION
  Report Type: Spontaneous
  Country: IT (occurrence: IT)
  Receive Date: 20161003
  Receipt Date: 20161025
  Transmission Date: 20170207
  Serious: Yes (Death, Other)
  Sender: FDA-Public Use
  Company Number: IT-ELI_LILLY_AND_COMPANY-IT201609010617

PATIENT
  Age: 63 Year
  Sex: Male
  Weight: 70 kg

DRUGS (2)
  1. ALIMTA [Suspect]
     Active Substance: PEMETREXED DISODIUM
     Indication: LUNG ADENOCARCINOMA STAGE IV
     Dosage: 500 MG/M2 (900 MG), CYCLICAL
     Route: 042
     Dates: start: 20160212, end: 20160714
  2. CISPLATIN. [Concomitant]
     Active Substance: CISPLATIN
     Indication: LUNG ADENOCARCINOMA STAGE IV
     Dosage: 130 MG (75MG/M2), CYCLICAL
     Route: 042

REACTIONS (2)
  - Cardio-respiratory arrest [Fatal]
  - Renal artery thrombosis [Unknown]

NARRATIVE: CASE EVENT DATE: 20160511
